FAERS Safety Report 16165211 (Version 4)
Quarter: 2019Q2

REPORT INFORMATION
  Report Type: Report from Study
  Country: CO (occurrence: CO)
  Receive Date: 20190405
  Receipt Date: 20190523
  Transmission Date: 20190711
  Serious: Yes (Death, Hospitalization)
  Sender: FDA-Public Use
  Company Number: PHHY2019CO065389

PATIENT
  Sex: Male
  Weight: 62 kg

DRUGS (2)
  1. VOTRIENT [Suspect]
     Active Substance: PAZOPANIB HYDROCHLORIDE
     Indication: RENAL CELL CARCINOMA
     Dosage: 800 MG, QD
     Route: 048
     Dates: start: 20180905, end: 20190316
  2. LEVOTHYROXINE. [Concomitant]
     Active Substance: LEVOTHYROXINE
     Indication: HYPOTHYROIDISM
     Dosage: 1 DF, UNK
     Route: 065

REACTIONS (4)
  - Haemoglobin decreased [Unknown]
  - Haematuria [Unknown]
  - Bladder pain [Unknown]
  - Respiratory arrest [Fatal]
